FAERS Safety Report 9430195 (Version 2)
Quarter: 2013Q3

REPORT INFORMATION
  Report Type: Spontaneous
  Country: JP (occurrence: JP)
  Receive Date: 20130730
  Receipt Date: 20130801
  Transmission Date: 20140515
  Serious: Yes (Other)
  Sender: FDA-Public Use
  Company Number: JP-OTSUKA-JP-2013-12666

PATIENT
  Age: 91 Year
  Sex: Male

DRUGS (2)
  1. SAMSCA [Suspect]
     Dosage: 7.5 MG MILLIGRAM(S), QD
     Route: 048
     Dates: end: 20130717
  2. GABAPEN [Concomitant]
     Route: 048

REACTIONS (1)
  - Loss of consciousness [Recovered/Resolved]
